FAERS Safety Report 6494233-0 (Version None)
Quarter: 2009Q4

REPORT INFORMATION
  Report Type: 
  Country: None (occurrence: None)
  Receive Date: 20091214
  Receipt Date: 20090127
  Transmission Date: 20100525
  Serious: No
  Sender: FDA-Public Use
  Company Number: US-BRISTOL-MYERS SQUIBB COMPANY-14484521

PATIENT
  Age: 37 Year
  Sex: Male
  Weight: 102 kg

DRUGS (6)
  1. ABILIFY [Suspect]
     Indication: BIPOLAR I DISORDER
     Dosage: DURATION 1 YEAR AND 6 MONTHS.
  2. CRESTOR [Concomitant]
  3. LISINOPRIL [Concomitant]
  4. NEXIUM [Concomitant]
  5. ZOLOFT [Concomitant]
  6. TRILAFON [Concomitant]

REACTIONS (1)
  - ANAEMIA [None]
